FAERS Safety Report 4769033-X (Version None)
Quarter: 2005Q3

REPORT INFORMATION
  Report Type: 
  Country: None (occurrence: None)
  Receive Date: 20050915
  Receipt Date: 20050904
  Transmission Date: 20060218
  Serious: Yes (Hospitalization, Other)
  Sender: FDA-Public Use
  Company Number: US-JNJFOC-20050901329

PATIENT
  Sex: Male
  Weight: 83.92 kg

DRUGS (5)
  1. REMICADE [Suspect]
     Indication: RHEUMATOID ARTHRITIS
     Dosage: 5 VIALS
     Route: 042
  2. METHOTREXATE [Concomitant]
     Dosage: 5 PILLS
  3. TOLECTIN [Concomitant]
  4. DARVOCET [Concomitant]
  5. DARVOCET [Concomitant]
     Indication: PAIN

REACTIONS (14)
  - ABASIA [None]
  - ALOPECIA [None]
  - ARTHRALGIA [None]
  - ASTHENIA [None]
  - ERYTHEMA [None]
  - FATIGUE [None]
  - INFLAMMATION [None]
  - JOINT SWELLING [None]
  - LOBAR PNEUMONIA [None]
  - LUNG NEOPLASM [None]
  - OEDEMA PERIPHERAL [None]
  - PNEUMONIA [None]
  - PYREXIA [None]
  - WEIGHT DECREASED [None]
